FAERS Safety Report 10958227 (Version 1)
Quarter: 2015Q1

REPORT INFORMATION
  Report Type: Spontaneous
  Country: ES (occurrence: ES)
  Receive Date: 20150326
  Receipt Date: 20150326
  Transmission Date: 20150721
  Serious: Yes (Other)
  Sender: FDA-Public Use
  Company Number: ES-PFIZER INC-2015103533

PATIENT
  Age: 61 Year
  Sex: Female

DRUGS (1)
  1. LYRICA [Suspect]
     Active Substance: PREGABALIN
     Indication: OSTEOARTHRITIS
     Dosage: UNK, 1X/DAY (LYRICA 25 MG, CAPSULE HARD / AT AN UNSPECIFIED DOSE, FREQUENCY 1X/DAY)
     Route: 048
     Dates: start: 20140805, end: 20150301

REACTIONS (2)
  - Product use issue [Unknown]
  - Vitreous haemorrhage [Unknown]

NARRATIVE: CASE EVENT DATE: 20140805
